FAERS Safety Report 12742528 (Version 1)
Quarter: 2016Q3

REPORT INFORMATION
  Report Type: Spontaneous
  Country: US (occurrence: US)
  Receive Date: 20160913
  Receipt Date: 20160913
  Transmission Date: 20161109
  Serious: Yes (Death, Life-Threatening)
  Sender: FDA-Public Use
  Company Number: None

PATIENT
  Age: 67 Year
  Sex: Male
  Weight: 86 kg

DRUGS (1)
  1. DALTEPARIN [Suspect]
     Active Substance: DALTEPARIN
     Indication: DEEP VEIN THROMBOSIS
     Dates: start: 20150219, end: 20150219

REACTIONS (5)
  - Headache [None]
  - Haemorrhage [None]
  - Nausea [None]
  - Vomiting [None]
  - Vasogenic cerebral oedema [None]

NARRATIVE: CASE EVENT DATE: 20150204
